FAERS Safety Report 7238496-2 (Version None)
Quarter: 2011Q1

REPORT INFORMATION
  Report Type: 
  Country: None (occurrence: None)
  Receive Date: 20110121
  Receipt Date: 20110112
  Transmission Date: 20110831
  Serious: Yes (Hospitalization)
  Sender: FDA-Public Use
  Company Number: CH-ASTRAZENECA-2011SE02156

PATIENT
  Age: 18 Year
  Sex: Female

DRUGS (9)
  1. ESOMEPRAZOLE [Suspect]
     Route: 048
     Dates: start: 20100901
  2. BROMAZEPAM [Concomitant]
     Route: 048
     Dates: start: 20100901
  3. GADOTERIC ACID [Suspect]
     Indication: DIAGNOSTIC PROCEDURE
     Route: 040
     Dates: start: 20100801
  4. ONDANSETRON [Concomitant]
     Route: 048
     Dates: start: 20100909
  5. DOMPERIDONE [Concomitant]
     Dates: start: 20100909
  6. TEMODAL [Suspect]
     Indication: BRAIN NEOPLASM MALIGNANT
     Route: 048
     Dates: start: 20100909, end: 20101026
  7. IOHEXOL [Suspect]
     Indication: DIAGNOSTIC PROCEDURE
     Route: 040
     Dates: start: 20100901
  8. PENTAMIDINE ISETHIONATE [Suspect]
     Indication: PROPHYLAXIS
     Route: 055
     Dates: start: 20101015
  9. DEXAMETHASONE [Concomitant]

REACTIONS (2)
  - RENAL TUBULAR DISORDER [None]
  - NEPHROLITHIASIS [None]
